FAERS Safety Report 5479009-5 (Version None)
Quarter: 2007Q4

REPORT INFORMATION
  Report Type: 
  Country: None (occurrence: None)
  Receive Date: 20071006
  Receipt Date: 20070925
  Transmission Date: 20080405
  Serious: Yes (Other)
  Sender: FDA-Public Use
  Company Number: FR-PFIZER INC-2007080524

PATIENT
  Sex: Male

DRUGS (1)
  1. LYRICA [Suspect]
     Indication: NEUROPATHY PERIPHERAL

REACTIONS (4)
  - DYSPNOEA EXERTIONAL [None]
  - HEPATIC STEATOSIS [None]
  - OEDEMA PERIPHERAL [None]
  - WEIGHT INCREASED [None]
